FAERS Safety Report 6663414-5 (Version None)
Quarter: 2010Q2

REPORT INFORMATION
  Report Type: 
  Country: None (occurrence: None)
  Receive Date: 20100401
  Receipt Date: 20100325
  Transmission Date: 20101027
  Serious: Yes (Hospitalization)
  Sender: FDA-Public Use
  Company Number: CO-GENENTECH-299742

PATIENT
  Sex: Female

DRUGS (2)
  1. MABTHERA [Suspect]
     Indication: RHEUMATOID ARTHRITIS
     Dosage: 1000 UNK, UNK
     Route: 042
     Dates: start: 20090821
  2. INSULINA NPH [Concomitant]
     Indication: DIABETES MELLITUS
     Dosage: 10 U, BID
     Route: 058

REACTIONS (2)
  - LEUKOPENIA [None]
  - PYREXIA [None]
